FAERS Safety Report 6572293-6 (Version None)
Quarter: 2010Q1

REPORT INFORMATION
  Report Type: 
  Country: None (occurrence: None)
  Receive Date: 20100205
  Receipt Date: 20100125
  Transmission Date: 20100710
  Serious: Yes (Hospitalization)
  Sender: FDA-Public Use
  Company Number: CA-AMGEN-US385323

PATIENT
  Sex: Female

DRUGS (13)
  1. ROMIPLOSTIM [Suspect]
     Indication: IDIOPATHIC THROMBOCYTOPENIC PURPURA
     Route: 058
     Dates: start: 20090428
  2. COLACE [Concomitant]
     Route: 048
     Dates: start: 20030501
  3. VENTOLIN [Concomitant]
     Route: 050
     Dates: start: 19840101
  4. FLAGYL [Concomitant]
     Route: 061
     Dates: start: 20090728
  5. ATIVAN [Concomitant]
     Route: 048
     Dates: start: 20091027
  6. IRON [Concomitant]
     Route: 048
     Dates: start: 20091103
  7. VITAMIN B-12 [Concomitant]
     Route: 058
     Dates: start: 20090806
  8. STEMETIL [Concomitant]
     Route: 048
     Dates: start: 20091008
  9. STATEX [Concomitant]
     Route: 048
     Dates: start: 20091203
  10. MAXERAN [Concomitant]
     Route: 048
     Dates: start: 20081101
  11. NEXIUM [Concomitant]
     Route: 048
     Dates: start: 20081122
  12. SINGULAIR [Concomitant]
     Route: 048
     Dates: start: 20071128
  13. SYMBICORT [Concomitant]
     Route: 050
     Dates: start: 20070822

REACTIONS (3)
  - BONE PAIN [None]
  - NAUSEA [None]
  - PYREXIA [None]
